FAERS Safety Report 13022484 (Version 1)
Quarter: 2016Q4

REPORT INFORMATION
  Report Type: Spontaneous
  Country: CA (occurrence: CA)
  Receive Date: 20161213
  Receipt Date: 20161213
  Transmission Date: 20170207
  Serious: Yes (Other)
  Sender: FDA-Public Use
  Company Number: CA-JNJFOC-20161203493

PATIENT
  Age: 3 Month
  Sex: Male

DRUGS (1)
  1. CHILDRENS TYLENOL [Suspect]
     Active Substance: ACETAMINOPHEN
     Indication: PYREXIA
     Dosage: AT LEAST 3 DAYS
     Route: 048

REACTIONS (3)
  - Symptom masked [Unknown]
  - Seizure [Unknown]
  - Drug administration error [Unknown]
